FAERS Safety Report 5086167-3 (Version None)
Quarter: 2006Q3

REPORT INFORMATION
  Report Type: 
  Country: None (occurrence: None)
  Receive Date: 20060818
  Receipt Date: 20060808
  Transmission Date: 20061208
  Serious: Yes (Other)
  Sender: FDA-Public Use
  Company Number: 2006097786

PATIENT
  Sex: Female

DRUGS (1)
  1. XALATAN [Suspect]
     Indication: DRUG USE FOR UNKNOWN INDICATION
     Dosage: TOPICAL
     Route: 061

REACTIONS (2)
  - HYPERSENSITIVITY [None]
  - PHARMACEUTICAL PRODUCT COMPLAINT [None]
